FAERS Safety Report 8248968-X (Version None)
Quarter: 2012Q2

REPORT INFORMATION
  Report Type: 
  Country: None (occurrence: None)
  Receive Date: 20120402
  Receipt Date: 20120323
  Transmission Date: 20120825
  Serious: Yes (Hospitalization)
  Sender: FDA-Public Use
  Company Number: US-BIOGENIDEC-2012BI003976

PATIENT
  Age: 28 Year
  Sex: Female
  Weight: 49 kg

DRUGS (2)
  1. TYSABRI [Suspect]
     Indication: CROHN'S DISEASE
     Route: 042
     Dates: start: 20110221, end: 20111017
  2. PREDNISONE [Concomitant]

REACTIONS (4)
  - TREATMENT NONCOMPLIANCE [None]
  - ADVERSE EVENT [None]
  - DRUG INEFFECTIVE [None]
  - PERIRECTAL ABSCESS [None]
